FAERS Safety Report 17502883 (Version 1)
Quarter: 2020Q1

REPORT INFORMATION
  Report Type: Spontaneous
  Country: US (occurrence: US)
  Receive Date: 20200225
  Receipt Date: 20200225
  Transmission Date: 20200409
  Serious: No
  Sender: FDA-Public Use
  Company Number: None

PATIENT
  Sex: Female

DRUGS (6)
  1. ADVAIR DISKU AER [Concomitant]
  2. BREO ELLIPTA INH [Concomitant]
  3. FERROUS SULF [Concomitant]
     Active Substance: FERROUS SULFATE
  4. AMLODIPINE [Concomitant]
     Active Substance: AMLODIPINE BESYLATE
  5. BISOPROL FUM [Concomitant]
     Active Substance: BISOPROLOL FUMARATE
  6. OCALIVA [Suspect]
     Active Substance: OBETICHOLIC ACID
     Indication: PRIMARY BILIARY CHOLANGITIS
     Route: 048
     Dates: start: 20180530

REACTIONS (2)
  - Memory impairment [None]
  - Influenza [None]
